FAERS Safety Report 9415504 (Version 1)
Quarter: 2013Q3

REPORT INFORMATION
  Report Type: Spontaneous
  Country: JP (occurrence: JP)
  Receive Date: 20130723
  Receipt Date: 20130723
  Transmission Date: 20140515
  Serious: Yes (Hospitalization)
  Sender: FDA-Public Use
  Company Number: JP-ELI_LILLY_AND_COMPANY-JP201307004971

PATIENT
  Age: 14 Year
  Sex: Female
  Weight: 33.8 kg

DRUGS (2)
  1. HUMATROPE [Suspect]
     Indication: BODY HEIGHT BELOW NORMAL
  2. SODIUM VALPROATE [Concomitant]
     Indication: EPILEPSY
     Route: 048

REACTIONS (1)
  - Renovascular hypertension [Recovering/Resolving]
